FAERS Safety Report 4470144-7 (Version None)
Quarter: 2004Q3

REPORT INFORMATION
  Report Type: 
  Country: None (occurrence: None)
  Receive Date: 20040910
  Receipt Date: 20040727
  Transmission Date: 20050211
  Serious: No
  Sender: FDA-Public Use
  Company Number: 2004226564US

PATIENT

DRUGS (2)
  1. BEXTRA [Suspect]
     Dosage: 10 MG, ORAL
     Route: 048
  2. ASPIRIN [Concomitant]

REACTIONS (3)
  - COAGULATION TIME SHORTENED [None]
  - DRUG INEFFECTIVE [None]
  - INSOMNIA [None]
